FAERS Safety Report 16156347 (Version 2)
Quarter: 2019Q2

REPORT INFORMATION
  Report Type: Spontaneous
  Country: SE (occurrence: SE)
  Receive Date: 20190404
  Receipt Date: 20190425
  Transmission Date: 20190711
  Serious: Yes (Life-Threatening, Hospitalization, Other)
  Sender: FDA-Public Use
  Company Number: SE-SA-2019SA068484

PATIENT
  Age: 9 Year
  Sex: Male

DRUGS (33)
  1. PREDNISONE. [Suspect]
     Active Substance: PREDNISONE
     Dosage: 1.5 MG/KG ( DAY +24)
  2. PREDNISONE. [Suspect]
     Active Substance: PREDNISONE
     Dosage: 1 MG/KG
  3. METHYLPREDNISOLONE. [Suspect]
     Active Substance: METHYLPREDNISOLONE
  4. ALLOPURINOL. [Suspect]
     Active Substance: ALLOPURINOL
     Indication: PRODUCT USED FOR UNKNOWN INDICATION
     Dosage: NOT REPORTED
  5. ACICLOVIR [Suspect]
     Active Substance: ACYCLOVIR
     Dosage: NOT REPORTED
  6. FLUCONAZOLE. [Suspect]
     Active Substance: FLUCONAZOLE
     Dosage: NOT REPORTED
  7. NIFEDIPINE. [Suspect]
     Active Substance: NIFEDIPINE
     Dosage: NOT REPORTED
  8. CICLOSPORIN [Suspect]
     Active Substance: CYCLOSPORINE
     Indication: STEM CELL TRANSPLANT
     Dosage: NOT REPORTED
     Route: 065
  9. MEROPENEM. [Concomitant]
     Active Substance: MEROPENEM
     Indication: PRODUCT USED FOR UNKNOWN INDICATION
     Dosage: NOT REPORTED
  10. METHOTREXATE. [Suspect]
     Active Substance: METHOTREXATE
     Indication: PROPHYLAXIS
     Dosage: NOT REPORTED
     Route: 065
  11. MESNA. [Suspect]
     Active Substance: MESNA
     Dosage: NOT REPORTED
  12. CODEINE [Suspect]
     Active Substance: CODEINE
     Indication: PRODUCT USED FOR UNKNOWN INDICATION
     Dosage: NOT REPORTED
  13. ZOPICLONE [Suspect]
     Active Substance: ZOPICLONE
     Dosage: NOT REPORTED
  14. PREDNISONE. [Suspect]
     Active Substance: PREDNISONE
     Dosage: DOSE INCREASED
  15. METHYLPREDNISOLONE. [Suspect]
     Active Substance: METHYLPREDNISOLONE
     Indication: PRODUCT USED FOR UNKNOWN INDICATION
  16. FUROSEMIDE. [Suspect]
     Active Substance: FUROSEMIDE
     Indication: PRODUCT USED FOR UNKNOWN INDICATION
     Dosage: NOT REPORTED
  17. DEXCHLORPHENIRAMINE MALEATE. [Suspect]
     Active Substance: DEXCHLORPHENIRAMINE MALEATE
     Dosage: NOT REPORTED
  18. ONDANSETRON [Suspect]
     Active Substance: ONDANSETRON
     Indication: PRODUCT USED FOR UNKNOWN INDICATION
     Dosage: NOT REPORTED
  19. MORPHINE HYDROCHLORIDE [Suspect]
     Active Substance: MORPHINE HYDROCHLORIDE
     Dosage: NOT REPORTED
  20. PREDNISONE. [Suspect]
     Active Substance: PREDNISONE
     Dosage: 2 MG/KG ( STARTED AT DAY +12)
  21. SULFAMETHOXAZOLE/TRIMETHOPRIM [Suspect]
     Active Substance: SULFAMETHOXAZOLE\TRIMETHOPRIM
     Dosage: NOT REPORTED
  22. PARACETAMOL [Suspect]
     Active Substance: ACETAMINOPHEN
     Dosage: NOT REPORTED
  23. PREDNISONE. [Suspect]
     Active Substance: PREDNISONE
     Dosage: 4 MG/KG
  24. PREDNISOLONE. [Suspect]
     Active Substance: PREDNISOLONE
     Dosage: NOT REPORTED
  25. CEFOTAXIME SODIUM [Suspect]
     Active Substance: CEFOTAXIME SODIUM
     Dosage: NOT REPORTED
  26. CYCLOPHOSPHAMIDE. [Suspect]
     Active Substance: CYCLOPHOSPHAMIDE
     Indication: BONE MARROW CONDITIONING REGIMEN
     Dosage: NOT REPORTED
  27. AMPICILLIN [Suspect]
     Active Substance: AMPICILLIN
     Dosage: NOT REPORTED
  28. GENTAMICIN. [Suspect]
     Active Substance: GENTAMICIN
     Indication: PRODUCT USED FOR UNKNOWN INDICATION
     Dosage: NOT REPORTED
  29. LACTULOSE. [Suspect]
     Active Substance: LACTULOSE
     Dosage: NOT REPORTED
  30. VANCOMYCIN [Suspect]
     Active Substance: VANCOMYCIN
     Indication: PRODUCT USED FOR UNKNOWN INDICATION
     Dosage: NOT REPORTED
  31. CEFTAZIDIME. [Suspect]
     Active Substance: CEFTAZIDIME
     Dosage: NOT REPORTED
  32. RANITIDINE. [Suspect]
     Active Substance: RANITIDINE
     Dosage: NOT REPORTED
  33. ALIMEMAZINE TARTRATE [Suspect]
     Active Substance: TRIMEPRAZINE
     Dosage: NOT REPORTED

REACTIONS (13)
  - Dehydration [Recovering/Resolving]
  - Off label use [Unknown]
  - Skin exfoliation [Recovering/Resolving]
  - Tachycardia [Recovering/Resolving]
  - Rash papular [Recovering/Resolving]
  - Enterococcal sepsis [Unknown]
  - Toxic epidermal necrolysis [Recovering/Resolving]
  - Epidermolysis [Recovering/Resolving]
  - Hypernatraemia [Recovering/Resolving]
  - Rash maculo-papular [Recovering/Resolving]
  - Hypothermia [Recovering/Resolving]
  - Platelet count decreased [Recovering/Resolving]
  - Thrombocytopenia [Recovering/Resolving]
